FAERS Safety Report 19855737 (Version 1)
Quarter: 2021Q3

REPORT INFORMATION
  Report Type: Spontaneous
  Country: US (occurrence: US)
  Receive Date: 20210920
  Receipt Date: 20210920
  Transmission Date: 20211014
  Serious: Yes (Hospitalization)
  Sender: FDA-Public Use
  Company Number: US-BRAINTREE LABORATORIES, INC.-2021BTE00744

PATIENT
  Age: 53 Year
  Sex: Female

DRUGS (2)
  1. SUTAB [Suspect]
     Active Substance: MAGNESIUM SULFATE\POTASSIUM CHLORIDE\SODIUM SULFATE
     Indication: COLONOSCOPY
     Dosage: 2 X 12 TABLETS, 1X
     Route: 048
     Dates: start: 20210822, end: 20210822
  2. ZYRTEC [Concomitant]
     Active Substance: CETIRIZINE HYDROCHLORIDE
     Dosage: UNK, DAILY

REACTIONS (4)
  - Vomiting [Recovered/Resolved]
  - Atrial fibrillation [Recovered/Resolved]
  - Nausea [Recovered/Resolved]
  - Wrong technique in product usage process [Recovered/Resolved]

NARRATIVE: CASE EVENT DATE: 20210822
